FAERS Safety Report 4603273-5 (Version None)
Quarter: 2005Q1

REPORT INFORMATION
  Report Type: 
  Country: None (occurrence: None)
  Receive Date: 20050308
  Receipt Date: 20050225
  Transmission Date: 20050727
  Serious: Yes (Hospitalization, Other)
  Sender: FDA-Public Use
  Company Number: 2005023902

PATIENT
  Age: 62 Year
  Sex: Female

DRUGS (1)
  1. CELEBREX [Suspect]
     Indication: TENDONITIS
     Dosage: 400 MG (200 MG, 2 IN 1 D), ORAL
     Route: 048
     Dates: start: 20050103, end: 20050112

REACTIONS (4)
  - ASTHENIA [None]
  - GASTROINTESTINAL HAEMORRHAGE [None]
  - SYNCOPE [None]
  - VOMITING [None]
